FAERS Safety Report 9417007 (Version 1)
Quarter: 2013Q3

REPORT INFORMATION
  Report Type: Spontaneous
  Country: US (occurrence: None)
  Receive Date: 20130722
  Receipt Date: 20130722
  Transmission Date: 20140515
  Serious: Yes (Other)
  Sender: FDA-Public Use
  Company Number: 2013P1011919

PATIENT
  Age: 49 Year
  Sex: Male

DRUGS (1)
  1. INFUMORPH [Suspect]
     Indication: PAIN
     Route: 037

REACTIONS (2)
  - Pain [None]
  - Medical device complication [None]
